FAERS Safety Report 17131204 (Version 7)
Quarter: 2020Q1

REPORT INFORMATION
  Report Type: Spontaneous
  Country: US (occurrence: US)
  Receive Date: 20191209
  Receipt Date: 20200302
  Transmission Date: 20200409
  Serious: Yes (Hospitalization)
  Sender: FDA-Public Use
  Company Number: US-ACTELION-A-NJ2019-199217

PATIENT
  Sex: Female
  Weight: 44.44 kg

DRUGS (2)
  1. VENTAVIS [Suspect]
     Active Substance: ILOPROST
     Indication: PULMONARY ARTERIAL HYPERTENSION
     Dosage: 5 MCG, 6-9 X DAILY
     Route: 055
  2. TYVASO [Suspect]
     Active Substance: TREPROSTINIL
     Indication: PRODUCT USED FOR UNKNOWN INDICATION
     Dosage: UNK
     Route: 065

REACTIONS (15)
  - Nasopharyngitis [Unknown]
  - Sputum discoloured [Unknown]
  - Cough [Unknown]
  - Scleroderma [Unknown]
  - Dyspnoea exertional [Unknown]
  - Peripheral swelling [Not Recovered/Not Resolved]
  - Hypotension [Unknown]
  - Pain in extremity [Unknown]
  - Vomiting [Unknown]
  - Productive cough [Unknown]
  - Dizziness [Recovered/Resolved]
  - Therapy non-responder [Unknown]
  - Oxygen saturation decreased [Unknown]
  - Constipation [Unknown]
  - Dyspnoea [Unknown]
